FAERS Safety Report 19848725 (Version 3)
Quarter: 2021Q4

REPORT INFORMATION
  Report Type: Report from Study
  Country: US (occurrence: US)
  Receive Date: 20210918
  Receipt Date: 20211013
  Transmission Date: 20220303
  Serious: No
  Sender: FDA-Public Use
  Company Number: NVSC2021US210711

PATIENT
  Age: 48 Year
  Sex: Female
  Weight: 88.44 kg

DRUGS (2)
  1. GILENYA [Suspect]
     Active Substance: FINGOLIMOD HYDROCHLORIDE
     Indication: Product used for unknown indication
     Dosage: 0.5 MG, QD
     Route: 048
     Dates: start: 2018
  2. MAYZENT [Suspect]
     Active Substance: SIPONIMOD
     Indication: Product used for unknown indication
     Dosage: UNK
     Route: 065
     Dates: start: 20201001

REACTIONS (5)
  - Balance disorder [Unknown]
  - Muscular weakness [Unknown]
  - Nausea [Unknown]
  - Dizziness [Unknown]
  - Central nervous system lesion [Unknown]

NARRATIVE: CASE EVENT DATE: 20201001
